FAERS Safety Report 6192579-7 (Version None)
Quarter: 2009Q2

REPORT INFORMATION
  Report Type: 
  Country: None (occurrence: None)
  Receive Date: 20090513
  Receipt Date: 20090427
  Transmission Date: 20091009
  Serious: Yes (Other)
  Sender: FDA-Public Use
  Company Number: 000747

PATIENT
  Sex: 0

DRUGS (1)
  1. OMEPRAZOLE [Suspect]
     Dosage: 10MG DAILY TRANSPLACENTAL
     Route: 064

REACTIONS (3)
  - DRUG EXPOSURE DURING PREGNANCY [None]
  - MATERNAL DRUGS AFFECTING FOETUS [None]
  - SOLITARY KIDNEY [None]
